FAERS Safety Report 5313331-8 (Version None)
Quarter: 2007Q2

REPORT INFORMATION
  Report Type: 
  Country: None (occurrence: None)
  Receive Date: 20070501
  Receipt Date: 20070424
  Transmission Date: 20071010
  Serious: Yes (Death, Life-Threatening, Hospitalization, Disabling)
  Sender: FDA-Public Use
  Company Number: BE-ELI_LILLY_AND_COMPANY-BE200703006487

PATIENT
  Age: 70 Year
  Sex: Female

DRUGS (2)
  1. GEMZAR [Suspect]
     Indication: NON-SMALL CELL LUNG CANCER
     Dosage: 1250 MG/M2, EVERY 3 WEEKS
     Route: 042
     Dates: start: 20051103, end: 20060119
  2. CISPLATIN [Concomitant]
     Indication: NON-SMALL CELL LUNG CANCER
     Dosage: 80 MG/M2, OTHER
     Dates: start: 20051103, end: 20060112

REACTIONS (1)
  - RADIATION PNEUMONITIS [None]
